FAERS Safety Report 19450599 (Version 1)
Quarter: 2021Q2

REPORT INFORMATION
  Report Type: Spontaneous
  Country: US (occurrence: US)
  Receive Date: 20210622
  Receipt Date: 20210622
  Transmission Date: 20210717
  Serious: Yes (Other)
  Sender: FDA-Public Use
  Company Number: US-PFIZER INC-2021680066

PATIENT
  Age: 44 Year
  Sex: Female

DRUGS (1)
  1. XELJANZ XR [Suspect]
     Active Substance: TOFACITINIB CITRATE
     Indication: RHEUMATOID ARTHRITIS
     Dosage: 11MG,1X/DAY
     Route: 048
     Dates: start: 202010

REACTIONS (5)
  - Loss of consciousness [Recovering/Resolving]
  - Headache [Recovering/Resolving]
  - Head injury [Recovering/Resolving]
  - Dehydration [Recovering/Resolving]
  - Vomiting [Recovering/Resolving]

NARRATIVE: CASE EVENT DATE: 20210522
